FAERS Safety Report 4765061-9 (Version None)
Quarter: 2005Q3

REPORT INFORMATION
  Report Type: 
  Country: None (occurrence: None)
  Receive Date: 20050907
  Receipt Date: 20050829
  Transmission Date: 20060218
  Serious: Yes (Hospitalization)
  Sender: FDA-Public Use
  Company Number: 2005-02844

PATIENT
  Age: 54 Year
  Sex: Male
  Weight: 81.6 kg

DRUGS (8)
  1. DICYCLOMINE [Suspect]
     Indication: ABDOMINAL PAIN UPPER
     Dosage: 1 TABLET, Q6H 2 TABLETS TOTAL, ORAL
     Route: 048
     Dates: start: 20050713, end: 20050713
  2. DICYCLOMINE [Suspect]
     Indication: CONSTIPATION
     Dosage: 1 TABLET, Q6H 2 TABLETS TOTAL, ORAL
     Route: 048
     Dates: start: 20050713, end: 20050713
  3. CRESTOR [Concomitant]
  4. ALLOPURINOL TALBET [Concomitant]
  5. ZETIA [Concomitant]
  6. ENALAPRIL [Concomitant]
  7. ACETYLSALICYLIC ACID SRT [Concomitant]
  8. MULTIVITAMINS (ERGOCALCIFEROL, RETINOL, NICOTINAMIDE, PANTHENOL) [Concomitant]

REACTIONS (3)
  - APPENDICITIS PERFORATED [None]
  - ILEUS [None]
  - POSTOPERATIVE INFECTION [None]
